FAERS Safety Report 4439150-2 (Version None)
Quarter: 2004Q3

REPORT INFORMATION
  Report Type: 
  Country: None (occurrence: None)
  Receive Date: 20040831
  Receipt Date: 20040824
  Transmission Date: 20050211
  Serious: Yes (Other)
  Sender: FDA-Public Use
  Company Number: 002519

PATIENT
  Age: 65 Year
  Sex: Female

DRUGS (5)
  1. MEDROXYPROGESTERONE ACETATE [Suspect]
     Dates: start: 19900309, end: 19980311
  2. PROVERA [Suspect]
     Dates: start: 19900309, end: 19980311
  3. PREMARIN [Suspect]
     Dates: start: 19780501, end: 19931206
  4. PREMPRO [Suspect]
     Dates: start: 19980311, end: 20010701
  5. ESTRACE [Suspect]
     Dates: start: 19931206, end: 19980311

REACTIONS (1)
  - BREAST CANCER FEMALE [None]
